FAERS Safety Report 7979568-4 (Version None)
Quarter: 2011Q4

REPORT INFORMATION
  Report Type: 
  Country: None (occurrence: None)
  Receive Date: 20111214
  Receipt Date: 20111206
  Transmission Date: 20120403
  Serious: Yes (Hospitalization, Other)
  Sender: FDA-Public Use
  Company Number: US-ABBOTT-11P-163-0717396-00

PATIENT
  Sex: Female
  Weight: 70 kg

DRUGS (55)
  1. HYDROCODONE BITARTRATE AND ACETAMINOPHEN [Suspect]
     Indication: BACK PAIN
     Dosage: 5/500 QID AS NEEDED
     Route: 048
     Dates: start: 20110212, end: 20110312
  2. BENADRYL [Concomitant]
     Indication: INSOMNIA
     Route: 048
     Dates: start: 20100628, end: 20110312
  3. THERATEARS [Concomitant]
     Indication: DRY EYE
     Dates: start: 20110413, end: 20110415
  4. LEVODOPA-CARBIDOPA INTESTINAL GEL [Concomitant]
     Indication: PRODUCT USED FOR UNKNOWN INDICATION
     Dosage: 5.6 ML/HR, 16 HRS DAILY, 103.8 ML/DAY
     Dates: start: 20100320, end: 20110411
  5. AMITIZA [Suspect]
     Indication: PRODUCT USED FOR UNKNOWN INDICATION
     Dates: end: 20110408
  6. ASPIRIN [Concomitant]
     Indication: CARDIOVASCULAR EVENT PROPHYLAXIS
     Route: 048
     Dates: start: 20110322
  7. VITAMIN B-12 [Concomitant]
     Dosage: 1000 MCG DAILY
     Dates: start: 20110322
  8. CARBOXYMETHYLCELLULOSE SODIUM [Concomitant]
     Indication: DRY EYE
     Dosage: DAILY
     Route: 047
     Dates: start: 20110201, end: 20110301
  9. METAXALONE [Concomitant]
     Indication: MUSCLE SPASMS
     Dosage: 400-800 MG 3X/DAY, 2400 MG DAILY
     Dates: start: 20110110, end: 20110317
  10. GLUCOSAMINE SULFATE [Concomitant]
     Indication: MEDICAL DIET
     Route: 048
     Dates: start: 20110412, end: 20110415
  11. VITAMIN D [Concomitant]
     Indication: MEDICAL DIET
     Route: 048
     Dates: start: 20090410, end: 20110313
  12. DOCUSATE SODIUM [Concomitant]
     Indication: CONSTIPATION
     Route: 048
     Dates: start: 20110412
  13. MULTIVITAMIN WITH LUTEIN [Concomitant]
     Indication: MEDICAL DIET
     Dosage: DAILY
     Dates: start: 20110413
  14. VITAMIN B-12 [Concomitant]
     Indication: NEUROPATHY PERIPHERAL
     Route: 060
     Dates: start: 20100701, end: 20110313
  15. MELOXICAM [Concomitant]
     Indication: BACK PAIN
     Route: 048
     Dates: start: 20110214
  16. FOLIC ACID [Concomitant]
     Indication: MEDICAL DIET
     Dosage: 400 MG DAILY
     Route: 048
     Dates: start: 20100411, end: 20110312
  17. RECLAST [Concomitant]
     Indication: OSTEOARTHRITIS
     Route: 042
     Dates: start: 20091103
  18. MULTI-VITAMIN [Concomitant]
     Indication: MEDICAL DIET
     Dates: start: 20110330, end: 20110410
  19. BACLOFEN [Concomitant]
     Indication: PRODUCT USED FOR UNKNOWN INDICATION
  20. CALCIUM MAGNESIUM [Concomitant]
     Indication: MEDICAL DIET
     Route: 048
     Dates: start: 20110413, end: 20110415
  21. SULFATRIM-DS [Concomitant]
     Indication: URINARY TRACT INFECTION
     Dosage: 800/160, TWO TABS DAILY
     Dates: start: 20110310, end: 20110314
  22. METAXALONE [Concomitant]
     Dates: start: 20110318, end: 20110410
  23. METAXALONE [Concomitant]
     Dates: start: 20110412, end: 20110415
  24. SARNA ANTI-ITCH LOTION (MENTHOL AND CAMPHOR) [Concomitant]
     Indication: RASH
     Dosage: AS REQUIRED
     Route: 061
     Dates: start: 20091016
  25. ZINC [Concomitant]
     Indication: MEDICAL DIET
     Route: 048
     Dates: start: 19900101, end: 20110313
  26. OMEPRAZOLE [Concomitant]
     Route: 048
     Dates: start: 20110413, end: 20110415
  27. BACLOFEN [Concomitant]
     Indication: BLADDER DISORDER
     Route: 048
     Dates: start: 20110408, end: 20110418
  28. PANTOPRAZOLE [Concomitant]
     Indication: GASTROOESOPHAGEAL REFLUX DISEASE
     Route: 048
     Dates: start: 20110413, end: 20110415
  29. ASCORBIC ACID [Concomitant]
     Indication: MEDICAL DIET
     Dosage: 500 MG DAILY
     Route: 048
     Dates: start: 20100411, end: 20110313
  30. CALCIUM [Concomitant]
     Indication: MEDICAL DIET
     Dates: start: 19900101, end: 20110313
  31. MAGNESIUM SULFATE [Concomitant]
     Indication: MEDICAL DIET
     Route: 048
     Dates: start: 19900101, end: 20110313
  32. CHARCOAL ACTIVATED [Concomitant]
     Indication: PRODUCT USED FOR UNKNOWN INDICATION
     Dates: start: 20110212
  33. LACTULOSE [Concomitant]
     Indication: CONSTIPATION
     Dates: start: 20110406
  34. OMEPRAZOLE [Concomitant]
     Indication: GASTROOESOPHAGEAL REFLUX DISEASE
     Route: 048
     Dates: start: 20110329, end: 20110410
  35. HYDROCODONE BITARTRATE AND ACETAMINOPHEN [Suspect]
     Indication: PAIN
     Dates: start: 20110412, end: 20110416
  36. DICLOFENAC EPOLAMINUM [Concomitant]
     Indication: BACK PAIN
     Dosage: 2 PATCHES DAILY
     Route: 062
     Dates: start: 20110126, end: 20110321
  37. DICLOFENAC EPOLAMINUM [Concomitant]
     Indication: MUSCLE SPASMS
     Dates: start: 20110413, end: 20110416
  38. DESOWEN [Concomitant]
     Indication: SEBORRHOEIC DERMATITIS
     Dosage: AS REQUIRED
     Route: 061
     Dates: start: 20090723, end: 20110313
  39. DESOWEN [Concomitant]
     Indication: DERMATITIS
     Route: 061
     Dates: start: 20110401, end: 20110415
  40. GLUCOSAMINE SULFATE [Concomitant]
     Indication: OSTEOARTHRITIS
     Route: 048
     Dates: start: 20100411, end: 20110313
  41. FOLIC ACID [Concomitant]
     Dates: start: 20110330
  42. VITAMIN D [Concomitant]
     Dates: start: 20110411, end: 20110418
  43. LACTULOSE [Concomitant]
     Route: 048
     Dates: start: 20110409
  44. SKELAXIN [Concomitant]
     Indication: MUSCLE SPASMS
     Dates: start: 20110412, end: 20110415
  45. THERATEARS [Concomitant]
     Indication: MEDICAL DIET
     Route: 048
     Dates: start: 20110412, end: 20110415
  46. MULTI-VITAMIN [Concomitant]
     Indication: MACULAR DEGENERATION
  47. MULTI-VITAMIN [Concomitant]
     Dates: start: 20110413
  48. ZOFRAN [Concomitant]
     Indication: NAUSEA
     Route: 048
     Dates: start: 20110330, end: 20110410
  49. LEVODOPA-CARBIDOPA INTESTINAL GEL [Concomitant]
     Dates: start: 20110412
  50. CARBIDOPA + LEVODOPA [Concomitant]
     Indication: PARKINSON'S DISEASE
     Dosage: 25/100, 6 TABS DAILY, AS NEEDED
     Dates: start: 20110223, end: 20110313
  51. CARBIDOPA + LEVODOPA [Concomitant]
     Dates: start: 20110404
  52. PHENOSODIUM PHENOLATE MOUTHWASH [Concomitant]
     Indication: DRY MOUTH
     Dosage: 1 APPLICATION DAILY, AS NEEDED
     Route: 048
     Dates: start: 20080101
  53. VITAMIN D [Concomitant]
     Dosage: DAILY
     Dates: start: 20110416, end: 20110418
  54. ZOFRAN [Concomitant]
     Route: 048
     Dates: start: 20110415, end: 20110415
  55. ZOLEDRONIC ACID [Concomitant]
     Indication: OSTEOPOROSIS
     Route: 042
     Dates: start: 20091103

REACTIONS (24)
  - VOMITING [None]
  - ADRENAL INSUFFICIENCY [None]
  - ABDOMINAL PAIN [None]
  - MICTURITION URGENCY [None]
  - ANXIETY [None]
  - HYPOPHAGIA [None]
  - DRY MOUTH [None]
  - URINARY RETENTION [None]
  - ILEUS [None]
  - CONSTIPATION [None]
  - HALLUCINATION [None]
  - FALL [None]
  - NERVOUSNESS [None]
  - POSTOPERATIVE ILEUS [None]
  - DIZZINESS POSTURAL [None]
  - ABNORMAL DREAMS [None]
  - EXCORIATION [None]
  - NAUSEA [None]
  - DYSURIA [None]
  - HYPONATRAEMIA [None]
  - URINE OUTPUT INCREASED [None]
  - URINARY TRACT INFECTION [None]
  - PAIN [None]
  - CONFUSIONAL STATE [None]
